FAERS Safety Report 5202965-7 (Version None)
Quarter: 2006Q4

REPORT INFORMATION
  Report Type: 
  Country: None (occurrence: None)
  Receive Date: 20061016
  Receipt Date: 20060227
  Transmission Date: 20070319
  Serious: Yes (Hospitalization)
  Sender: FDA-Public Use
  Company Number: 2006031769

PATIENT
  Sex: 0

DRUGS (7)
  1. NEURONTIN [Suspect]
     Indication: ILL-DEFINED DISORDER
  2. DESYREL [Suspect]
     Indication: ILL-DEFINED DISORDER
     Dosage: ORAL
     Route: 048
  3. CLONAZEPAM [Suspect]
     Indication: ILL-DEFINED DISORDER
  4. CYMBALTA [Suspect]
     Indication: ILL-DEFINED DISORDER
  5. LAMICTAL [Suspect]
     Indication: ILL-DEFINED DISORDER
  6. LITHOBID [Suspect]
     Indication: ILL-DEFINED DISORDER
  7. RISPERDAL [Concomitant]

REACTIONS (1)
  - CEREBROVASCULAR ACCIDENT [None]
